FAERS Safety Report 11601834 (Version 2)
Quarter: 2015Q4

REPORT INFORMATION
  Report Type: Spontaneous
  Country: US (occurrence: US)
  Receive Date: 20151006
  Receipt Date: 20151008
  Transmission Date: 20160304
  Serious: No
  Sender: FDA-Public Use
  Company Number: US-AMGEN-USASP2015054348

PATIENT
  Age: 73 Year
  Sex: Female
  Weight: 44.9 kg

DRUGS (1)
  1. PROLIA [Suspect]
     Active Substance: DENOSUMAB
     Indication: PRODUCT USED FOR UNKNOWN INDICATION
     Dosage: UNK
     Route: 030

REACTIONS (5)
  - Incorrect route of drug administration [Unknown]
  - Myalgia [Unknown]
  - Tooth disorder [Unknown]
  - Back pain [Unknown]
  - Treatment failure [Unknown]
